FAERS Safety Report 6709027-8 (Version None)
Quarter: 2010Q2

REPORT INFORMATION
  Report Type: 
  Country: None (occurrence: None)
  Receive Date: 20100430
  Receipt Date: 20100430
  Transmission Date: 20101027
  Serious: Yes (Death, Hospitalization)
  Sender: FDA-Public Use
  Company Number: None

PATIENT
  Age: 17 Year
  Sex: Male
  Weight: 95 kg

DRUGS (1)
  1. DAPSONE [Suspect]
     Indication: ACNE
     Dosage: ORAL 047
     Route: 048

REACTIONS (9)
  - ABDOMINAL PAIN [None]
  - CHEST PAIN [None]
  - COAGULOPATHY [None]
  - JAUNDICE [None]
  - MALAISE [None]
  - MENTAL STATUS CHANGES [None]
  - PARAESTHESIA [None]
  - RASH [None]
  - RESPIRATORY DISTRESS [None]
